FAERS Safety Report 6264119-5 (Version None)
Quarter: 2009Q3

REPORT INFORMATION
  Report Type: 
  Country: None (occurrence: None)
  Receive Date: 20090706
  Receipt Date: 20090302
  Transmission Date: 20100115
  Serious: Yes (Hospitalization)
  Sender: FDA-Public Use
  Company Number: 618175

PATIENT
  Age: 60 Year
  Sex: Female
  Weight: 57 kg

DRUGS (26)
  1. CELLCEPT [Suspect]
     Indication: IMMUNOSUPPRESSION
     Dosage: 1500 MG ORAL
     Route: 048
     Dates: start: 20090107, end: 20090111
  2. MYCOPHENOLATE SODIUM (MYCOPHENOLATE SODIUM) [Suspect]
     Indication: DRUG USE FOR UNKNOWN INDICATION
     Dosage: 360 MG ORAL
     Route: 048
     Dates: start: 20090112
  3. MYFORTIC [Suspect]
     Indication: DRUG USE FOR UNKNOWN INDICATION
     Dosage: 540 MG  4 PER DAY  ORAL
     Route: 048
     Dates: start: 20090114
  4. BLINDED PLACEBO (PLACEBO) [Suspect]
     Indication: PROPHYLAXIS
     Dosage: 0.5 MG/KG  INTRAVENOUS
     Route: 042
     Dates: start: 20090108, end: 20090108
  5. BELLADONNA [Concomitant]
  6. COREG [Concomitant]
  7. GLIPIZIDE [Concomitant]
  8. TACROLIMUS [Concomitant]
  9. PROTONIX [Concomitant]
  10. NIFEDIPINE [Concomitant]
  11. VALGANCICLOVIR HCL [Concomitant]
  12. BACTRIM [Concomitant]
  13. PREDNISONE [Concomitant]
  14. BUMEX [Concomitant]
  15. NORCO [Concomitant]
  16. TEMAZEPAM [Concomitant]
  17. RENAGEL [Concomitant]
  18. SENSIPAR (CINACALCET) [Concomitant]
  19. METHYLPRENISOLONE [Concomitant]
  20. CISATRACURIUM BESYLATE [Concomitant]
  21. LIDOCAINE [Concomitant]
  22. ACETAMINOPHEN [Concomitant]
  23. MEPERIDINE HCL [Concomitant]
  24. PROPOFOL [Concomitant]
  25. PHENYLEPHRINE (PHENYLEPHRINE HYDROCHLORIDE) [Concomitant]
  26. ANTITHYMOCYTE GLOBULIN (ANTITHYMOCYTE IMMUNOGLOBULIN) [Concomitant]

REACTIONS (16)
  - ANAEMIA [None]
  - BACTERIA URINE [None]
  - CARDIAC MURMUR [None]
  - DYSPEPSIA [None]
  - GASTRIC ULCER [None]
  - GASTROINTESTINAL STENOSIS [None]
  - HYPOALBUMINAEMIA [None]
  - HYPOPHOSPHATAEMIA [None]
  - HYPOPROTEINAEMIA [None]
  - HYPOTENSION [None]
  - MELAENA [None]
  - PAIN [None]
  - PROTEINURIA [None]
  - RED BLOOD CELL COUNT INCREASED [None]
  - THROMBOCYTOPENIA [None]
  - VOMITING [None]
